FAERS Safety Report 8298829-5 (Version None)
Quarter: 2012Q2

REPORT INFORMATION
  Report Type: 
  Country: None (occurrence: None)
  Receive Date: 20120419
  Receipt Date: 20120412
  Transmission Date: 20120825
  Serious: Yes (Other)
  Sender: FDA-Public Use
  Company Number: SE-CELGENEUS-150-21660-12041385

PATIENT
  Age: 75 Year
  Sex: Female

DRUGS (1)
  1. ABRAXANE [Suspect]
     Route: 041

REACTIONS (4)
  - PHARYNGEAL OEDEMA [None]
  - LIP SWELLING [None]
  - URTICARIA [None]
  - ANGIOEDEMA [None]
